APPROVED DRUG PRODUCT: DELTA-CORTEF
Active Ingredient: PREDNISOLONE
Strength: 5MG
Dosage Form/Route: TABLET;ORAL
Application: N009987 | Product #004
Applicant: PHARMACIA AND UPJOHN CO
Approved: Approved Prior to Jan 1, 1982 | RLD: No | RS: No | Type: DISCN